FAERS Safety Report 6187541-4 (Version None)
Quarter: 2009Q2

REPORT INFORMATION
  Report Type: 
  Country: None (occurrence: None)
  Receive Date: 20090512
  Receipt Date: 20080313
  Transmission Date: 20091009
  Serious: Yes (Other)
  Sender: FDA-Public Use
  Company Number: DE-ALEXION-A200700109

PATIENT

DRUGS (11)
  1. SOLIRIS [Suspect]
     Indication: PAROXYSMAL NOCTURNAL HAEMOGLOBINURIA
     Dosage: 600 MG, SINGLE
     Route: 042
     Dates: start: 20070806, end: 20070806
  2. SOLIRIS [Suspect]
     Dosage: 600 MG, SINGLE
     Route: 042
  3. SOLIRIS [Suspect]
     Dosage: 600 MG, SINGLE
     Route: 042
  4. SOLIRIS [Suspect]
     Dosage: 600 MG, SINGLE
     Route: 042
  5. SOLIRIS [Suspect]
     Dosage: 900 MG, SINGLE
     Route: 042
  6. PREDNISOLONE [Concomitant]
     Indication: HAEMOLYSIS
     Dosage: 5 MG, UNK
     Route: 048
     Dates: start: 20070101
  7. ALDACTONE [Concomitant]
     Indication: OEDEMA
     Dates: start: 20071001
  8. ALDACTONE [Concomitant]
     Indication: HYPERTENSION
  9. NIFEDIPINE [Concomitant]
     Indication: HYPERTENSION
  10. CALCIUM W/VITAMIN D NOS [Concomitant]
     Indication: OSTEOPOROSIS
  11. PANTOPRAZOLE SODIUM [Concomitant]
     Dosage: UNK, UNK

REACTIONS (2)
  - ARTHRALGIA [None]
  - JOINT SWELLING [None]
